FAERS Safety Report 10137411 (Version 7)
Quarter: 2015Q3

REPORT INFORMATION
  Report Type: Spontaneous
  Country: US (occurrence: US)
  Receive Date: 20140429
  Receipt Date: 20150805
  Transmission Date: 20151125
  Serious: Yes (Hospitalization, Disabling, Other)
  Sender: FDA-Public Use
  Company Number: US-009507513-1404USA010660

PATIENT
  Sex: Female
  Weight: 65.76 kg

DRUGS (2)
  1. FOSAMAX [Suspect]
     Active Substance: ALENDRONATE SODIUM
     Indication: OSTEOPENIA
     Dosage: 70 MG, QW
     Route: 048
     Dates: end: 201105
  2. FOSAMAX [Suspect]
     Active Substance: ALENDRONATE SODIUM
     Dosage: UNK, QD
     Route: 048
     Dates: start: 1999, end: 2008

REACTIONS (14)
  - Cholecystectomy [Unknown]
  - Skin abrasion [Unknown]
  - Fall [Unknown]
  - Osteoarthritis [Unknown]
  - Intramedullary rod insertion [Unknown]
  - Eye disorder [Unknown]
  - Femur fracture [Recovering/Resolving]
  - Breast operation [Unknown]
  - Endodontic procedure [Unknown]
  - Osteoarthritis [Unknown]
  - Femur fracture [Recovered/Resolved]
  - Intramedullary rod insertion [Unknown]
  - Limb operation [Unknown]
  - Dermatitis contact [Unknown]

NARRATIVE: CASE EVENT DATE: 20050703
